FAERS Safety Report 16405125 (Version 3)
Quarter: 2020Q3

REPORT INFORMATION
  Report Type: Spontaneous
  Country: US (occurrence: US)
  Receive Date: 20190607
  Receipt Date: 20200929
  Transmission Date: 20201102
  Serious: No
  Sender: FDA-Public Use
  Company Number: PHEH2019US024025

PATIENT
  Sex: Male

DRUGS (4)
  1. OMEPRAZOLE DELAYED RELEASE CAPSULES [Suspect]
     Active Substance: OMEPRAZOLE
     Indication: NAUSEA
     Dosage: UNK
     Route: 065
  2. XTANDI [Interacting]
     Active Substance: ENZALUTAMIDE
     Indication: PROSTATE CANCER
     Dosage: 80 MG, QD
     Route: 048
     Dates: start: 20180227
  3. OMEPRAZOLE DELAYED RELEASE CAPSULES [Interacting]
     Active Substance: OMEPRAZOLE
     Indication: DECREASED APPETITE
  4. ATORVASTATIN [Suspect]
     Active Substance: ATORVASTATIN
     Indication: PRODUCT USED FOR UNKNOWN INDICATION
     Route: 065

REACTIONS (7)
  - Drug interaction [Unknown]
  - Decreased appetite [Unknown]
  - Drug ineffective [Unknown]
  - Nausea [Unknown]
  - Product use in unapproved indication [Unknown]
  - Underdose [Unknown]
  - Asthenia [Unknown]
